FAERS Safety Report 4731718-9 (Version None)
Quarter: 2005Q3

REPORT INFORMATION
  Report Type: 
  Country: None (occurrence: None)
  Receive Date: 20050725
  Receipt Date: 20040921
  Transmission Date: 20060218
  Serious: Yes (Disabling)
  Sender: FDA-Public Use
  Company Number: WAES 0306USA00826

PATIENT
  Age: 51 Year
  Sex: Female

DRUGS (1)
  1. VIOXX [Suspect]
     Indication: INFLAMMATION
     Dosage: 25 MG/DAILY/PO
     Route: 048
     Dates: start: 20001019, end: 20020412

REACTIONS (26)
  - ABDOMINAL PAIN UPPER [None]
  - ADVERSE EVENT [None]
  - ANXIETY [None]
  - CARDIOVASCULAR DECONDITIONING [None]
  - CARPAL TUNNEL SYNDROME [None]
  - DEPRESSION [None]
  - DIARRHOEA [None]
  - DIZZINESS [None]
  - DRUG EFFECT DECREASED [None]
  - DYSPNOEA [None]
  - FALL [None]
  - FATIGUE [None]
  - HEADACHE [None]
  - HYPOAESTHESIA [None]
  - MEDIAN NERVE INJURY [None]
  - MICROCYTIC ANAEMIA [None]
  - MIGRAINE [None]
  - MUSCULOSKELETAL STIFFNESS [None]
  - NAUSEA [None]
  - PAIN [None]
  - PRURITUS GENERALISED [None]
  - RHINITIS [None]
  - SCOLIOSIS [None]
  - SEASONAL ALLERGY [None]
  - URTICARIA [None]
  - VOMITING [None]
